FAERS Safety Report 8858783 (Version 1)
Quarter: 2012Q4

REPORT INFORMATION
  Report Type: Spontaneous
  Country: US (occurrence: None)
  Receive Date: 20121023
  Receipt Date: 20121023
  Transmission Date: 20130627
  Serious: No
  Sender: FDA-Public Use
  Company Number: None

PATIENT
  Age: 42 Year
  Sex: Male
  Weight: 108 kg

DRUGS (2)
  1. ACETAMINOPHEN/OXYCODONE [Suspect]
     Indication: PAIN
     Route: 048
     Dates: start: 20120523, end: 20120913
  2. NAPROXEN [Suspect]
     Route: 048
     Dates: start: 20120411, end: 20120913

REACTIONS (2)
  - Rash [None]
  - Respiratory depression [None]
